FAERS Safety Report 24105837 (Version 1)
Quarter: 2024Q3

REPORT INFORMATION
  Report Type: Spontaneous
  Country: US (occurrence: None)
  Receive Date: 20240716
  Receipt Date: 20240716
  Transmission Date: 20241016
  Serious: Yes (Hospitalization)
  Sender: Public
  Company Number: None

PATIENT
  Age: 23 Year
  Sex: Female
  Weight: 67 kg

DRUGS (2)
  1. TRUXIMA [Suspect]
     Active Substance: RITUXIMAB-ABBS
     Indication: Granulomatosis with polyangiitis
     Dosage: OTHER FREQUENCY : 1000MG IV Q 2 WKS;?
     Route: 041
     Dates: start: 20231019
  2. AVACOPAN [Suspect]
     Active Substance: AVACOPAN

REACTIONS (4)
  - Abdominal pain [None]
  - Diarrhoea [None]
  - Haematochezia [None]
  - Colitis ulcerative [None]

NARRATIVE: CASE EVENT DATE: 20240127
